FAERS Safety Report 7564942-0 (Version None)
Quarter: 2011Q2

REPORT INFORMATION
  Report Type: 
  Country: None (occurrence: None)
  Receive Date: 20110622
  Receipt Date: 20110421
  Transmission Date: 20111010
  Serious: Yes (Other)
  Sender: FDA-Public Use
  Company Number: US-MYLANLABS-2011S1004033

PATIENT
  Age: 42 Year
  Sex: Female

DRUGS (5)
  1. TOPAMAX [Concomitant]
  2. CLOZAPINE [Suspect]
     Indication: SCHIZOPHRENIA
     Route: 048
     Dates: end: 20110324
  3. BUSPAR [Concomitant]
  4. INVEGA [Concomitant]
  5. DEPAKOTE ER [Concomitant]
     Dosage: 1000MG QAM, 1500MG QPM

REACTIONS (1)
  - GRANULOCYTOPENIA [None]
